FAERS Safety Report 7224804-5 (Version None)
Quarter: 2011Q1

REPORT INFORMATION
  Report Type: 
  Country: None (occurrence: None)
  Receive Date: 20110104
  Receipt Date: 20101222
  Transmission Date: 20110831
  Serious: Yes (Other)
  Sender: FDA-Public Use
  Company Number: 8033440

PATIENT
  Age: 0 Day
  Sex: Female
  Weight: 3.9 kg

DRUGS (5)
  1. FOLIC ACID [Concomitant]
  2. KEPPRA [Suspect]
     Indication: EPILEPSY
     Dosage: 1000 MG BID TRANSPLACENTAL
     Route: 064
     Dates: start: 20070220, end: 20071124
  3. PROTONIX [Concomitant]
  4. VALTREX [Concomitant]
  5. PRENATAL /00231801/ [Concomitant]

REACTIONS (2)
  - ERB'S PALSY [None]
  - MATERNAL DRUGS AFFECTING FOETUS [None]
